FAERS Safety Report 18086368 (Version 3)
Quarter: 2020Q3

REPORT INFORMATION
  Report Type: Spontaneous
  Country: BR (occurrence: BR)
  Receive Date: 20200729
  Receipt Date: 20200924
  Transmission Date: 20201103
  Serious: Yes (Other)
  Sender: FDA-Public Use
  Company Number: BR-GLAXOSMITHKLINE-BR2020AMR007267

PATIENT
  Age: 38 Year
  Sex: Male

DRUGS (4)
  1. AMINOPHYLLINE. [Suspect]
     Active Substance: AMINOPHYLLINE
     Indication: PRODUCT USED FOR UNKNOWN INDICATION
     Dosage: UNK
  2. CORTISONE (HYDROCORTISONE ACETATE) [Suspect]
     Active Substance: HYDROCORTISONE ACETATE
     Indication: PRODUCT USED FOR UNKNOWN INDICATION
     Dosage: UNK
  3. NUCALA [Suspect]
     Active Substance: MEPOLIZUMAB
     Indication: ASTHMA
     Dosage: UNK
     Dates: start: 20191125
  4. AEROLIN [Suspect]
     Active Substance: ALBUTEROL
     Indication: ASTHMA
     Dosage: UNK

REACTIONS (31)
  - Dyspnoea [Recovering/Resolving]
  - Hypovitaminosis [Unknown]
  - Skin disorder [Unknown]
  - Dermatitis allergic [Unknown]
  - Rash [Recovered/Resolved]
  - Pruritus [Recovered/Resolved]
  - Asthmatic crisis [Unknown]
  - Tachycardia [Unknown]
  - Self-medication [Unknown]
  - Fatigue [Unknown]
  - Pain [Unknown]
  - Ear discomfort [Unknown]
  - Scratch [Unknown]
  - SARS-CoV-2 test positive [Unknown]
  - Anxiety disorder [Unknown]
  - Drug ineffective [Unknown]
  - Disease recurrence [Unknown]
  - Pyrexia [Unknown]
  - Visual impairment [Unknown]
  - Acne [Unknown]
  - Malaise [Unknown]
  - Chest pain [Unknown]
  - Wheezing [Recovering/Resolving]
  - Urticaria [Recovered/Resolved]
  - Skin atrophy [Unknown]
  - Hunger [Unknown]
  - Headache [Unknown]
  - Bacterial infection [Unknown]
  - Illness anxiety disorder [Unknown]
  - Product dose omission issue [Unknown]
  - Therapeutic response unexpected [Unknown]

NARRATIVE: CASE EVENT DATE: 202004
